FAERS Safety Report 8696962 (Version 3)
Quarter: 2012Q4

REPORT INFORMATION
  Report Type: 
  Country: US (occurrence: US)
  Receive Date: 20120801
  Receipt Date: 20121123
  Transmission Date: 20130627
  Serious: Yes (Other)
  Sender: FDA-Public Use
  Company Number: US-PFIZER INC-2012183360

PATIENT
  Age: 49 Year
  Sex: Male

DRUGS (9)
  1. NORVASC [Suspect]
     Indication: HYPERTENSION
     Dosage: 10 mg, 1x/day
     Route: 048
  2. NORVASC [Suspect]
     Dosage: 0.5 DF, 1x/day
     Route: 048
     Dates: start: 20120806
  3. CARDURA [Suspect]
     Indication: HYPERTENSION
     Dosage: 4 mg, 2x/day
     Route: 048
     Dates: start: 20110725
  4. XANAX [Suspect]
     Indication: INSOMNIA NOS
     Dosage: 1 DF (^0.25^), 3x/day
     Route: 048
     Dates: start: 20110626
  5. DIOVANE [Concomitant]
     Indication: BP
     Dosage: 325 mg, 1x/day
  6. BUMEX [Concomitant]
     Indication: BP
     Dosage: 1 mg, 1x/day
  7. LASIX [Concomitant]
     Indication: FLUID RETENTION
     Dosage: 40 mg, as needed
  8. TYL 3 [Concomitant]
     Indication: REFLEX SYMPATHETIC DYSTROPHY
     Dosage: 3x/day
  9. VOLTAREN [Concomitant]
     Indication: REFLEX SYMPATHETIC DYSTROPHY
     Dosage: UNK

REACTIONS (1)
  - Cerebrovascular accident [Unknown]
